FAERS Safety Report 7385002-8 (Version None)
Quarter: 2011Q1

REPORT INFORMATION
  Report Type: 
  Country: None (occurrence: None)
  Receive Date: 20110323
  Receipt Date: 20100310
  Transmission Date: 20110831
  Serious: No
  Sender: FDA-Public Use
  Company Number: KV201000078

PATIENT
  Age: 58 Year
  Sex: Female

DRUGS (2)
  1. SYNTHROID [Concomitant]
  2. GYNAZOLE-1 [Suspect]
     Indication: VULVOVAGINAL CANDIDIASIS
     Dosage: 1 APPLICATORFUL, SINGLE, VAGINAL
     Route: 067
     Dates: start: 20090401, end: 20090401

REACTIONS (1)
  - HEADACHE [None]
